FAERS Safety Report 9364425 (Version 1)
Quarter: 2013Q2

REPORT INFORMATION
  Report Type: Spontaneous
  Country: JP (occurrence: JP)
  Receive Date: 20130624
  Receipt Date: 20130624
  Transmission Date: 20140414
  Serious: Yes (Hospitalization, Other)
  Sender: FDA-Public Use
  Company Number: JP-WATSON-2013-10716

PATIENT
  Age: 5 Year
  Sex: Female

DRUGS (7)
  1. VINCRISTINE (UNKNOWN) [Suspect]
     Indication: ACUTE LYMPHOCYTIC LEUKAEMIA
     Dosage: 2 MG/M2, 1/WEEK, DAYS 1 AND 8
     Route: 042
  2. DEXAMETHASONE (UNKNOWN) [Suspect]
     Indication: ACUTE LYMPHOCYTIC LEUKAEMIA
     Dosage: 6MG/M2 DAYS 1-14
     Route: 048
  3. METHOTREXATE (UNKNOWN) [Suspect]
     Indication: ACUTE LYMPHOCYTIC LEUKAEMIA
     Dosage: 30 MG/M2, 1/WEEK, DAYS 15, 22, 29, 36, 43 AND 50
     Route: 048
  4. METHOTREXATE (UNKNOWN) [Suspect]
     Dosage: 15 ADDITIONAL DOSES
     Route: 037
  5. MERCAPTOPURINE [Suspect]
     Indication: ACUTE LYMPHOCYTIC LEUKAEMIA
     Dosage: 50 MG/M2, DAILY, DAYS 15-56
     Route: 048
  6. TRIMETHOPRIM SULFAMETHOXAZOLE [Concomitant]
     Indication: ANTIBIOTIC PROPHYLAXIS
     Dosage: UNK
     Route: 065
  7. IMMUNOGLOBULINS [Concomitant]
     Indication: IMMUNOGLOBULIN THERAPY
     Dosage: UNK
     Route: 042

REACTIONS (2)
  - Cytomegalovirus chorioretinitis [Recovered/Resolved]
  - Pneumocystis jirovecii pneumonia [Unknown]
